FAERS Safety Report 23281282 (Version 7)
Quarter: 2025Q1

REPORT INFORMATION
  Report Type: Report from Study
  Country: FR (occurrence: FR)
  Receive Date: 20231211
  Receipt Date: 20250228
  Transmission Date: 20250408
  Serious: Yes (Hospitalization)
  Sender: JOHNSON AND JOHNSON
  Company Number: FR-JNJFOC-20231059195

PATIENT
  Age: 21 Year
  Sex: Female

DRUGS (12)
  1. SPRAVATO [Suspect]
     Active Substance: ESKETAMINE
     Indication: Depression
     Route: 045
     Dates: start: 20230919, end: 20230922
  2. SPRAVATO [Suspect]
     Active Substance: ESKETAMINE
     Route: 045
     Dates: start: 20230922, end: 20230926
  3. SPRAVATO [Suspect]
     Active Substance: ESKETAMINE
     Route: 045
     Dates: start: 20231013
  4. LITHIUM [Concomitant]
     Active Substance: LITHIUM
     Route: 065
     Dates: start: 20220215, end: 2022
  5. LITHIUM [Concomitant]
     Active Substance: LITHIUM
     Route: 065
     Dates: start: 20230605, end: 20231227
  6. LITHIUM [Concomitant]
     Active Substance: LITHIUM
     Route: 065
     Dates: start: 20231228
  7. VENLAFAXINE [Concomitant]
     Active Substance: VENLAFAXINE HYDROCHLORIDE
     Route: 065
     Dates: start: 20210628, end: 20220221
  8. VENLAFAXINE [Concomitant]
     Active Substance: VENLAFAXINE HYDROCHLORIDE
     Route: 065
     Dates: start: 20220215
  9. MIRTAZAPINE [Concomitant]
     Active Substance: MIRTAZAPINE
     Route: 065
     Dates: start: 20240109, end: 2024
  10. ARIPIPRAZOLE [Concomitant]
     Active Substance: ARIPIPRAZOLE
     Indication: Dissociation
     Route: 065
     Dates: start: 20230703, end: 20230719
  11. ARIPIPRAZOLE [Concomitant]
     Active Substance: ARIPIPRAZOLE
     Route: 065
     Dates: start: 20230720, end: 20231025
  12. ARIPIPRAZOLE [Concomitant]
     Active Substance: ARIPIPRAZOLE
     Route: 065
     Dates: start: 20231025

REACTIONS (4)
  - Suicidal ideation [Recovered/Resolved]
  - Anxiety [Recovering/Resolving]
  - Drug ineffective [Recovering/Resolving]
  - Paranoid personality disorder [Unknown]

NARRATIVE: CASE EVENT DATE: 20230922
